FAERS Safety Report 20807002 (Version 3)
Quarter: 2022Q4

REPORT INFORMATION
  Report Type: Spontaneous
  Country: CA (occurrence: CA)
  Receive Date: 20220510
  Receipt Date: 20221103
  Transmission Date: 20230113
  Serious: Yes (Other)
  Sender: FDA-Public Use
  Company Number: CA-SPECGX-T202200683

PATIENT
  Age: 49 Year
  Sex: Male

DRUGS (3)
  1. METHADOSE [Suspect]
     Active Substance: METHADONE HYDROCHLORIDE
     Indication: Drug use disorder
     Dosage: UNK
     Route: 065
  2. FENTANYL [Suspect]
     Active Substance: FENTANYL
     Indication: Drug abuse
     Dosage: 1 GRAM, QD (SMOKING)
     Route: 050
  3. BUPRENORPHINE\NALOXONE [Suspect]
     Active Substance: BUPRENORPHINE\NALOXONE
     Indication: Drug use disorder
     Dosage: 1 DOSAGE FORM (BUPRENORPHINE: 2 MG; NALOXONE: 0.50 MG)
     Route: 065

REACTIONS (4)
  - Emotional distress [Unknown]
  - Drug withdrawal syndrome [Unknown]
  - Substance use [Unknown]
  - Drug ineffective [Unknown]
